FAERS Safety Report 9733119 (Version 1)
Quarter: 2013Q4

REPORT INFORMATION
  Report Type: Spontaneous
  Country: FR (occurrence: FR)
  Receive Date: 20131205
  Receipt Date: 20131205
  Transmission Date: 20140711
  Serious: Yes (Hospitalization)
  Sender: FDA-Public Use
  Company Number: PHHY2013FR135873

PATIENT
  Age: 84 Year
  Sex: Female

DRUGS (6)
  1. VALPROIC ACID [Suspect]
     Indication: EPILEPSY
     Dosage: 1000 MG, PER DAY
  2. LEVETIRACETAM [Suspect]
     Indication: GRAND MAL CONVULSION
     Dosage: 1000 MG, PER DAY
  3. LEVETIRACETAM [Suspect]
     Dosage: 1250 MG, PER DAY
  4. LAMOTRIGINE [Concomitant]
     Indication: GRAND MAL CONVULSION
     Dosage: 100 MG, PER DAY
  5. LOPRAZOLAM [Concomitant]
     Dosage: 1 MG, PER DAY
  6. FUROSEMIDE [Concomitant]
     Dosage: 20 MG, PER DAY

REACTIONS (6)
  - Toxic encephalopathy [Recovered/Resolved]
  - Convulsion [Recovered/Resolved]
  - Mental impairment [Recovered/Resolved]
  - Confusional state [Recovered/Resolved]
  - Grand mal convulsion [Recovered/Resolved]
  - Drug ineffective [Unknown]
